FAERS Safety Report 7680419-6 (Version None)
Quarter: 2011Q3

REPORT INFORMATION
  Report Type: 
  Country: None (occurrence: None)
  Receive Date: 20110812
  Receipt Date: 20110809
  Transmission Date: 20111222
  Serious: Yes (Other)
  Sender: FDA-Public Use
  Company Number: US-PFIZER INC-2011108883

PATIENT
  Sex: Female

DRUGS (3)
  1. GEMFIBROZIL [Suspect]
     Dosage: UNK
     Dates: start: 20030101
  2. SIMCOR [Suspect]
     Dosage: UNK
  3. NIASPAN [Suspect]

REACTIONS (2)
  - DIABETES MELLITUS [None]
  - PRURITUS [None]
